FAERS Safety Report 25289163 (Version 1)
Quarter: 2025Q2

REPORT INFORMATION
  Report Type: Spontaneous
  Country: US (occurrence: US)
  Receive Date: 20250509
  Receipt Date: 20250509
  Transmission Date: 20250716
  Serious: Yes (Hospitalization)
  Sender: QUAGEN PHARMACEUTICALS
  Company Number: US-QUAGEN-2025QUALIT00326

PATIENT
  Age: 16 Year
  Sex: Female

DRUGS (19)
  1. METHYLPHENIDATE HYDROCHLORIDE [Suspect]
     Active Substance: METHYLPHENIDATE HYDROCHLORIDE
     Indication: Product used for unknown indication
     Route: 048
  2. QUETIAPINE [Suspect]
     Active Substance: QUETIAPINE
     Indication: Product used for unknown indication
     Route: 065
  3. QUETIAPINE [Suspect]
     Active Substance: QUETIAPINE
     Route: 065
  4. QUETIAPINE [Suspect]
     Active Substance: QUETIAPINE
     Route: 065
  5. QUETIAPINE [Suspect]
     Active Substance: QUETIAPINE
     Route: 065
  6. QUETIAPINE [Suspect]
     Active Substance: QUETIAPINE
     Route: 065
  7. QUETIAPINE [Suspect]
     Active Substance: QUETIAPINE
     Route: 065
  8. BUPROPION [Suspect]
     Active Substance: BUPROPION
     Indication: Product used for unknown indication
     Route: 065
  9. BUPROPION [Suspect]
     Active Substance: BUPROPION
     Route: 065
  10. BUPROPION [Suspect]
     Active Substance: BUPROPION
     Route: 065
  11. BUPROPION [Suspect]
     Active Substance: BUPROPION
     Route: 065
  12. KETAMINE [Concomitant]
     Active Substance: KETAMINE
     Indication: Product used for unknown indication
     Route: 042
  13. KETAMINE [Concomitant]
     Active Substance: KETAMINE
     Route: 042
  14. KETAMINE [Concomitant]
     Active Substance: KETAMINE
     Route: 042
  15. KETAMINE [Concomitant]
     Active Substance: KETAMINE
     Route: 042
  16. KETAMINE [Concomitant]
     Active Substance: KETAMINE
     Route: 042
  17. KETAMINE [Concomitant]
     Active Substance: KETAMINE
     Route: 042
  18. KETAMINE [Concomitant]
     Active Substance: KETAMINE
     Route: 030
  19. KETAMINE [Concomitant]
     Active Substance: KETAMINE
     Route: 030

REACTIONS (7)
  - Blood sodium increased [Recovering/Resolving]
  - Protein total increased [Recovering/Resolving]
  - Blood magnesium increased [Recovering/Resolving]
  - High density lipoprotein increased [Recovering/Resolving]
  - Protein urine present [Recovering/Resolving]
  - Tachycardia [Recovering/Resolving]
  - Intentional overdose [Unknown]
